FAERS Safety Report 7477683-5 (Version None)
Quarter: 2011Q2

REPORT INFORMATION
  Report Type: 
  Country: None (occurrence: None)
  Receive Date: 20110513
  Receipt Date: 20110224
  Transmission Date: 20111010
  Serious: Yes (Hospitalization, Other)
  Sender: FDA-Public Use
  Company Number: US-BAYER-201041558NA

PATIENT
  Age: 24 Year
  Sex: Female
  Weight: 118.69 kg

DRUGS (7)
  1. PHENERGAN HCL [Concomitant]
  2. VICODIN [Concomitant]
  3. PERCOCET [Concomitant]
  4. YAZ [Suspect]
     Indication: ACNE
     Dosage: UNK
     Dates: start: 20040825, end: 20090709
  5. YASMIN [Suspect]
     Indication: ACNE
     Dosage: UNK
     Dates: start: 20040825, end: 20090709
  6. DROSPIRENONE AND ETHINYL ESTRADIOL [Suspect]
     Indication: ACNE
  7. IBUPROFEN [Concomitant]

REACTIONS (2)
  - CHOLECYSTITIS CHRONIC [None]
  - INJURY [None]
